FAERS Safety Report 9503075 (Version 4)
Quarter: 2014Q1

REPORT INFORMATION
  Report Type: Spontaneous
  Country: IT (occurrence: IT)
  Receive Date: 20130906
  Receipt Date: 20140306
  Transmission Date: 20141002
  Serious: Yes (Death, Hospitalization)
  Sender: FDA-Public Use
  Company Number: IT-PFIZER INC-2013256497

PATIENT
  Age: 80 Year
  Sex: Male

DRUGS (2)
  1. SUTENT [Suspect]
     Indication: CLEAR CELL RENAL CELL CARCINOMA
     Dosage: 50 MG, 1X/DAY
     Route: 048
     Dates: start: 20130531, end: 20130623
  2. ZOMETA [Concomitant]
     Dosage: 4 MG, UNK
     Dates: start: 20130610

REACTIONS (7)
  - Disease progression [Fatal]
  - Clear cell renal cell carcinoma [Fatal]
  - Cheilitis [Recovering/Resolving]
  - Febrile neutropenia [Recovering/Resolving]
  - Stomatitis [Not Recovered/Not Resolved]
  - Thrombocytopenia [Recovering/Resolving]
  - Tri-iodothyronine decreased [Unknown]
